FAERS Safety Report 5771438-5 (Version None)
Quarter: 2008Q2

REPORT INFORMATION
  Report Type: 
  Country: None (occurrence: None)
  Receive Date: 20080613
  Receipt Date: 20080611
  Transmission Date: 20081010
  Serious: Yes (Other)
  Sender: FDA-Public Use
  Company Number: PHEH2008US05297

PATIENT
  Sex: Female

DRUGS (1)
  1. VIVELLE-DOT [Suspect]
     Dosage: 0.1 MG, QD
     Route: 062

REACTIONS (3)
  - AMNESIA [None]
  - DRUG LEVEL DECREASED [None]
  - SPEECH DISORDER [None]
